FAERS Safety Report 4428080-8 (Version None)
Quarter: 2004Q3

REPORT INFORMATION
  Report Type: 
  Country: None (occurrence: None)
  Receive Date: 20040813
  Receipt Date: 20040806
  Transmission Date: 20050211
  Serious: Yes (Hospitalization)
  Sender: FDA-Public Use
  Company Number: US-SHR-04-023874

PATIENT
  Age: 60 Year
  Sex: Female
  Weight: 87.5 kg

DRUGS (10)
  1. BETASERON [Suspect]
     Indication: MULTIPLE SCLEROSIS
     Dosage: 8 MIU, EVERY 2D, SUBCUTANEOUS
     Route: 058
     Dates: start: 20031001
  2. COUMADIN [Suspect]
     Indication: THROMBOSIS PROPHYLAXIS
     Dosage: 8 MG, 1X/DAY, ORAL; DOSE DECREASED
     Route: 048
     Dates: start: 20040301, end: 20040401
  3. COUMADIN [Suspect]
     Indication: THROMBOSIS PROPHYLAXIS
     Dosage: 8 MG, 1X/DAY, ORAL; DOSE DECREASED
     Route: 048
     Dates: start: 20040401
  4. PREMARIN [Concomitant]
  5. IMIPRAMINE [Concomitant]
  6. PROVIGIL [Concomitant]
  7. PREVACID [Concomitant]
  8. IRON (IRON) [Concomitant]
  9. VICODIN [Concomitant]
  10. ZANAFLEX [Concomitant]

REACTIONS (6)
  - ARTHRALGIA [None]
  - CONDITION AGGRAVATED [None]
  - HYPERHIDROSIS [None]
  - INTERNATIONAL NORMALISED RATIO DECREASED [None]
  - NAUSEA [None]
  - OSTEOARTHRITIS [None]
